FAERS Safety Report 7737494-X (Version None)
Quarter: 2011Q3

REPORT INFORMATION
  Report Type: 
  Country: None (occurrence: None)
  Receive Date: 20110908
  Receipt Date: 20110901
  Transmission Date: 20111222
  Serious: Yes (Hospitalization)
  Sender: FDA-Public Use
  Company Number: AU-GLAXOSMITHKLINE-B0735398A

PATIENT
  Age: 21 Year
  Sex: Female

DRUGS (6)
  1. ZOFRAN [Suspect]
     Indication: PRODUCT USED FOR UNKNOWN INDICATION
     Route: 042
  2. ZOFRAN [Suspect]
     Route: 065
  3. ZOFRAN [Suspect]
     Indication: HYPEREMESIS GRAVIDARUM
     Route: 065
     Dates: start: 20110629
  4. MAXOLON [Suspect]
     Indication: PRODUCT USED FOR UNKNOWN INDICATION
     Route: 065
  5. VENTOLIN HFA [Suspect]
     Indication: PRODUCT USED FOR UNKNOWN INDICATION
     Dosage: 2PUFF AS REQUIRED
     Route: 065
  6. LEXAPRO [Suspect]
     Indication: PRODUCT USED FOR UNKNOWN INDICATION
     Dosage: 10G UNKNOWN
     Route: 065
     Dates: start: 20110609

REACTIONS (2)
  - MALAISE [None]
  - MATERNAL EXPOSURE DURING PREGNANCY [None]
